FAERS Safety Report 11631911 (Version 1)
Quarter: 2015Q4

REPORT INFORMATION
  Report Type: Spontaneous
  Country: US (occurrence: None)
  Receive Date: 20151014
  Receipt Date: 20151014
  Transmission Date: 20160304
  Serious: Yes (Hospitalization)
  Sender: FDA-Public Use
  Company Number: None

PATIENT
  Age: 55 Year
  Sex: Female

DRUGS (2)
  1. GLEOSTINE [Suspect]
     Active Substance: LOMUSTINE
     Dosage: 2 CAPSULES ONCE EVERY 42 DAYS
     Route: 048
     Dates: start: 20150801, end: 20151013
  2. LOMUSTINE 100MG [Suspect]
     Active Substance: LOMUSTINE
     Indication: BRAIN NEOPLASM MALIGNANT
     Dosage: 2 CAPSULES ONCE EVERY 42 DAYS
     Route: 048
     Dates: start: 20150801, end: 20151013

REACTIONS (1)
  - Blood count abnormal [None]

NARRATIVE: CASE EVENT DATE: 20151013
